FAERS Safety Report 12180073 (Version 3)
Quarter: 2016Q2

REPORT INFORMATION
  Report Type: Spontaneous
  Country: US (occurrence: US)
  Receive Date: 20160315
  Receipt Date: 20160504
  Transmission Date: 20160815
  Serious: Yes (Death, Other)
  Sender: FDA-Public Use
  Company Number: US-PFIZER INC-2016104415

PATIENT
  Age: 73 Year
  Sex: Male
  Weight: 82 kg

DRUGS (2)
  1. SUTENT [Suspect]
     Active Substance: SUNITINIB MALATE
     Indication: METASTATIC RENAL CELL CARCINOMA
     Dosage: 50 MG, CYCLIC (1 PO DAILY THEN 2 WEEKS OFF #28)
     Route: 048
     Dates: start: 20160227, end: 20160303
  2. SUTENT [Suspect]
     Active Substance: SUNITINIB MALATE
     Dosage: 50 MG, 1X/DAY
     Dates: start: 20160228

REACTIONS (5)
  - Death [Fatal]
  - Cardiac disorder [Unknown]
  - Blood bilirubin abnormal [Unknown]
  - Renal failure [Unknown]
  - Jaundice [Unknown]

NARRATIVE: CASE EVENT DATE: 20160228
